FAERS Safety Report 6337578-7 (Version None)
Quarter: 2009Q3

REPORT INFORMATION
  Report Type: 
  Country: None (occurrence: None)
  Receive Date: 20090902
  Receipt Date: 20090820
  Transmission Date: 20100115
  Serious: Yes (Hospitalization)
  Sender: FDA-Public Use
  Company Number: US-ELI_LILLY_AND_COMPANY-US200908004451

PATIENT
  Sex: Male

DRUGS (3)
  1. ZYPREXA [Suspect]
     Indication: SCHIZOPHRENIA, PARANOID TYPE
     Dosage: 15 MG, DAILY (1/D)
     Dates: start: 19970101, end: 20070601
  2. ZYPREXA [Suspect]
     Dosage: 20 MG, DAILY (1/D)
     Dates: start: 20070601, end: 20070101
  3. ZYPREXA [Suspect]
     Dosage: 30 MG, DAILY (1/D)
     Dates: start: 20070101, end: 20070101

REACTIONS (3)
  - DRUG INEFFECTIVE [None]
  - MENTAL DISORDER [None]
  - OVERDOSE [None]
